FAERS Safety Report 17900652 (Version 1)
Quarter: 2020Q2

REPORT INFORMATION
  Report Type: Spontaneous
  Country: GB (occurrence: GB)
  Receive Date: 20200616
  Receipt Date: 20200616
  Transmission Date: 20200714
  Serious: Yes (Hospitalization)
  Sender: FDA-Public Use
  Company Number: GB-TASMAN PHARMA, INC.-2020TSM00243

PATIENT
  Age: 39 Year
  Sex: Male

DRUGS (10)
  1. CLOZAPINE. [Suspect]
     Active Substance: CLOZAPINE
     Dosage: UNK
     Route: 065
     Dates: start: 2015, end: 2015
  2. VALPROATE [Suspect]
     Active Substance: VALPROIC ACID
     Dosage: 500 MG, 2X/DAY
     Route: 065
     Dates: end: 201707
  3. LITHIUM. [Concomitant]
     Active Substance: LITHIUM
     Route: 065
  4. CLOZAPINE. [Suspect]
     Active Substance: CLOZAPINE
     Dosage: 450 MG
     Route: 065
     Dates: start: 2017
  5. CLOZAPINE. [Suspect]
     Active Substance: CLOZAPINE
     Dosage: UNK
     Route: 065
     Dates: start: 201208, end: 201209
  6. CLOZAPINE. [Suspect]
     Active Substance: CLOZAPINE
     Dosage: 350 MG, 1X/DAY
     Route: 065
     Dates: start: 201707
  7. CLOZAPINE. [Suspect]
     Active Substance: CLOZAPINE
     Dosage: 250 MG, 1X/DAY
     Route: 065
     Dates: start: 2017, end: 2017
  8. VALPROATE [Suspect]
     Active Substance: VALPROIC ACID
     Indication: SCHIZOAFFECTIVE DISORDER
     Dosage: 1250 MG, 2X/DAY
     Route: 065
     Dates: start: 2015
  9. CLOZAPINE. [Suspect]
     Active Substance: CLOZAPINE
     Indication: SCHIZOAFFECTIVE DISORDER
     Dosage: TITRATED UP TO 400 MG DAILY
     Route: 065
     Dates: start: 200310, end: 200407
  10. OLANZAPINE. [Suspect]
     Active Substance: OLANZAPINE
     Indication: SCHIZOAFFECTIVE DISORDER
     Dosage: 20 MG, 1X/DAY
     Route: 065
     Dates: start: 2015, end: 201707

REACTIONS (3)
  - Duodenal obstruction [Recovered/Resolved]
  - Pancreatitis [Recovered/Resolved]
  - Pancreatic pseudocyst [Recovered/Resolved]

NARRATIVE: CASE EVENT DATE: 2012
